FAERS Safety Report 9206102 (Version 1)
Quarter: 2013Q1

REPORT INFORMATION
  Report Type: Spontaneous
  Country: US (occurrence: None)
  Receive Date: 20120731
  Receipt Date: 20120731
  Transmission Date: 20140127
  Serious: No
  Sender: FDA-Public Use
  Company Number: US200809001039

PATIENT
  Sex: Female

DRUGS (2)
  1. BYETTA (EXENATIDE) PEN, DISPOSABLE [Suspect]
     Indication: DIABETES MELLITUS
     Route: 058
     Dates: start: 2009
  2. EXENATIDE PEN, DISPOSABLE DEVICE [Concomitant]

REACTIONS (5)
  - Weight increased [None]
  - Weight decreased [None]
  - Abdominal distension [None]
  - Intentional drug misuse [None]
  - Inappropriate schedule of drug administration [None]
